FAERS Safety Report 7303048-2 (Version None)
Quarter: 2011Q1

REPORT INFORMATION
  Report Type: 
  Country: None (occurrence: None)
  Receive Date: 20110221
  Receipt Date: 20110210
  Transmission Date: 20110831
  Serious: Yes (Hospitalization)
  Sender: FDA-Public Use
  Company Number: JP-BIOGENIDEC-2010BI032066

PATIENT
  Age: 43 Year
  Sex: Female

DRUGS (20)
  1. PREDNISOLONE [Concomitant]
     Dates: start: 20080728, end: 20081021
  2. LIORESAL [Concomitant]
     Dates: start: 20100521
  3. OMEPRAL [Concomitant]
     Dates: start: 20091228
  4. SELBEX [Concomitant]
     Dates: start: 20100216
  5. TEGRETOL [Concomitant]
     Dates: start: 20080728, end: 20100119
  6. STROCAIN [Concomitant]
     Dates: start: 20080825, end: 20090414
  7. GABAPEN [Concomitant]
     Dates: start: 20080922, end: 20091130
  8. SOLU-MEDROL [Concomitant]
     Dates: start: 20090216, end: 20090223
  9. RINPRAL [Concomitant]
     Dates: start: 20080728, end: 20090630
  10. PREDNISOLONE [Concomitant]
     Dates: start: 20080728, end: 20081021
  11. PANTOSIN [Concomitant]
     Dates: start: 20080728
  12. DEPAS [Concomitant]
     Dates: start: 20080728
  13. AVONEX [Suspect]
     Indication: RELAPSING-REMITTING MULTIPLE SCLEROSIS
     Route: 030
     Dates: start: 20080728, end: 20100524
  14. PREDNISOLONE [Concomitant]
     Dates: start: 20100525
  15. TRYPTANOL [Concomitant]
     Dates: start: 20100119
  16. PREDONINE [Concomitant]
     Dates: start: 20100515, end: 20100524
  17. MAGNESIUM OXIDE [Concomitant]
     Dates: start: 20080728
  18. GASMOTIN [Concomitant]
     Dates: start: 20080728
  19. PURSENNID [Concomitant]
     Dates: start: 20080728
  20. TOPIRAMATE [Concomitant]
     Dates: start: 20091130, end: 20100119

REACTIONS (1)
  - NEUROMYELITIS OPTICA [None]
